FAERS Safety Report 7285927-8 (Version None)
Quarter: 2011Q1

REPORT INFORMATION
  Report Type: 
  Country: None (occurrence: None)
  Receive Date: 20110210
  Receipt Date: 20110201
  Transmission Date: 20110831
  Serious: Yes (Life-Threatening, Other)
  Sender: FDA-Public Use
  Company Number: JP-MERCK-1102USA00638

PATIENT
  Age: 72 Year
  Sex: Female

DRUGS (7)
  1. PEPCID [Suspect]
     Route: 048
  2. SUNRYTHM [Suspect]
     Route: 048
  3. PREDNISOLONE [Concomitant]
     Route: 065
  4. MICARDIS [Concomitant]
     Route: 065
  5. MAGLAX [Concomitant]
     Route: 065
  6. ZYLORIC [Concomitant]
     Route: 065
  7. THYRADIN-S [Concomitant]
     Route: 065

REACTIONS (4)
  - PYELONEPHRITIS ACUTE [None]
  - RENAL FAILURE ACUTE [None]
  - TOXICITY TO VARIOUS AGENTS [None]
  - DEHYDRATION [None]
